FAERS Safety Report 8511816-4 (Version None)
Quarter: 2012Q3

REPORT INFORMATION
  Report Type: 
  Country: None (occurrence: None)
  Receive Date: 20120716
  Receipt Date: 20120711
  Transmission Date: 20120928
  Serious: Yes (Hospitalization, Other)
  Sender: FDA-Public Use
  Company Number: PHHY2010JP03101

PATIENT
  Sex: Female
  Weight: 46 kg

DRUGS (8)
  1. LASIX [Concomitant]
     Indication: HYPERTENSION
     Dosage: 30 MG, UNK
     Route: 048
     Dates: start: 20051201
  2. METOPROLOL TARTRATE [Concomitant]
     Indication: HYPERTENSION
     Dosage: 20 MG, UNK
     Route: 048
     Dates: start: 20080501
  3. IMATINIB MESYLATE [Suspect]
     Indication: CHRONIC MYELOID LEUKAEMIA
     Dosage: 400 MG DAILY
     Route: 048
     Dates: start: 20050711, end: 20050726
  4. IMATINIB MESYLATE [Suspect]
     Dosage: 400 MG, QD
     Route: 048
     Dates: start: 20051001, end: 20091224
  5. IMATINIB MESYLATE [Suspect]
     Dosage: 200 MG, QD
     Route: 048
     Dates: start: 20100106
  6. IMATINIB MESYLATE [Suspect]
     Dosage: 200 MG, QD
     Route: 048
     Dates: start: 20050809, end: 20051001
  7. MUCOSTA [Concomitant]
     Indication: GASTRITIS
     Dosage: 300 MG, UNK
     Dates: start: 20051101
  8. DIOVAN [Concomitant]
     Indication: HYPERTENSION
     Dosage: 40 MG, UNK
     Route: 048
     Dates: start: 20090801

REACTIONS (6)
  - TOXIC SKIN ERUPTION [None]
  - RIGHT VENTRICULAR HYPERTROPHY [None]
  - PULMONARY ARTERIAL HYPERTENSION [None]
  - OEDEMA PERIPHERAL [None]
  - GASTROOESOPHAGEAL REFLUX DISEASE [None]
  - WEIGHT INCREASED [None]
